FAERS Safety Report 18804669 (Version 1)
Quarter: 2021Q1

REPORT INFORMATION
  Report Type: Spontaneous
  Country: US (occurrence: US)
  Receive Date: 20210129
  Receipt Date: 20210129
  Transmission Date: 20210419
  Serious: No
  Sender: FDA-Public Use
  Company Number: US-UCBSA-2020043530

PATIENT
  Sex: Female
  Weight: 56.7 kg

DRUGS (6)
  1. KEPPRA [Suspect]
     Active Substance: LEVETIRACETAM
     Indication: SEIZURE
     Dosage: UNK
  2. TEGRETOL [Suspect]
     Active Substance: CARBAMAZEPINE
     Indication: SEIZURE
     Dosage: UNK
  3. DILANTIN [Suspect]
     Active Substance: PHENYTOIN
     Indication: SEIZURE
     Dosage: UNK
  4. LAMICTAL [Suspect]
     Active Substance: LAMOTRIGINE
     Indication: SEIZURE
     Dosage: UNK
  5. PHENOBARBITAL. [Suspect]
     Active Substance: PHENOBARBITAL
     Indication: SEIZURE
     Dosage: UNK
  6. ZONEGRAN [Suspect]
     Active Substance: ZONISAMIDE
     Indication: SEIZURE
     Dosage: UNK

REACTIONS (1)
  - Multiple-drug resistance [Unknown]
